FAERS Safety Report 19250399 (Version 8)
Quarter: 2022Q4

REPORT INFORMATION
  Report Type: Report from Study
  Country: US (occurrence: US)
  Receive Date: 20210512
  Receipt Date: 20221117
  Transmission Date: 20230113
  Serious: Yes (Hospitalization, Other)
  Sender: FDA-Public Use
  Company Number: US-SHIRE-US201900876

PATIENT
  Age: 69 Year
  Sex: Female

DRUGS (2)
  1. HUMAN IMMUNOGLOBULIN G [Suspect]
     Active Substance: HUMAN IMMUNOGLOBULIN G
     Indication: Primary immunodeficiency syndrome
     Dosage: UNK
     Route: 058
  2. CUVITRU [Suspect]
     Active Substance: HUMAN IMMUNOGLOBULIN G
     Indication: Primary immunodeficiency syndrome
     Dosage: UNK
     Route: 065

REACTIONS (18)
  - COVID-19 [Recovering/Resolving]
  - Cardiac amyloidosis [Unknown]
  - Pneumonia [Unknown]
  - Amyloidosis [Unknown]
  - Atrial fibrillation [Unknown]
  - Conjunctival haemorrhage [Unknown]
  - Non-alcoholic fatty liver [Unknown]
  - Sleep apnoea syndrome [Unknown]
  - Urinary tract infection [Unknown]
  - Skin disorder [Unknown]
  - Anaemia [Unknown]
  - Infusion site swelling [Unknown]
  - Abdominal distension [Unknown]
  - Headache [Unknown]
  - Tachycardia [Unknown]
  - Abdominal discomfort [Unknown]
  - Joint injury [Unknown]
  - Fall [Unknown]

NARRATIVE: CASE EVENT DATE: 20190110
